FAERS Safety Report 5816796-8 (Version None)
Quarter: 2008Q3

REPORT INFORMATION
  Report Type: 
  Country: None (occurrence: None)
  Receive Date: 20080721
  Receipt Date: 20080709
  Transmission Date: 20090109
  Serious: Yes (Other)
  Sender: FDA-Public Use
  Company Number: US-PFIZER INC-2008059693

PATIENT
  Sex: Female
  Weight: 68.9 kg

DRUGS (4)
  1. CHANTIX [Suspect]
     Indication: SMOKING CESSATION THERAPY
  2. TRILEPTAL [Concomitant]
  3. TRAZODONE HCL [Concomitant]
  4. PROTONIX [Concomitant]

REACTIONS (2)
  - ABNORMAL DREAMS [None]
  - DEPRESSION [None]
